FAERS Safety Report 8405177 (Version 2)
Quarter: 2012Q4

REPORT INFORMATION
  Report Type: 
  Country: CL (occurrence: CL)
  Receive Date: 20120214
  Receipt Date: 20120914
  Transmission Date: 20130627
  Serious: Yes (Death, Other)
  Sender: FDA-Public Use
  Company Number: CL-PFIZER INC-2012036820

PATIENT
  Age: 62 Year
  Sex: Male

DRUGS (3)
  1. CHAMPIX [Suspect]
     Indication: SMOKING CESSATION THERAPY
     Dosage: 0.5 mg, 1x/day
     Route: 048
     Dates: start: 201110, end: 201110
  2. PREGABALIN [Suspect]
     Dosage: UNK
  3. TRAMADOL [Concomitant]
     Dosage: UNK

REACTIONS (3)
  - Respiratory failure [Fatal]
  - Lung neoplasm malignant [Unknown]
  - Metastases to bone [Unknown]
